FAERS Safety Report 12541487 (Version 1)
Quarter: 2016Q3

REPORT INFORMATION
  Report Type: Report from Study
  Country: US (occurrence: US)
  Receive Date: 20160708
  Receipt Date: 20160708
  Transmission Date: 20161109
  Serious: Yes (Hospitalization, Other)
  Sender: FDA-Public Use
  Company Number: US-TEVA-674768USA

PATIENT
  Age: 40 Week
  Sex: Female

DRUGS (5)
  1. PROPRANOLOL [Suspect]
     Active Substance: PROPRANOLOL\PROPRANOLOL HYDROCHLORIDE
     Route: 048
  2. TIMOLOL 0.5% GEL-FORMING SOLUTION [Concomitant]
     Indication: EYELID PTOSIS
     Dosage: ONE DROP INTRAOCULARLY
     Route: 031
  3. PROPRANOLOL [Suspect]
     Active Substance: PROPRANOLOL\PROPRANOLOL HYDROCHLORIDE
     Route: 048
  4. TIMOLOL 0.5% GEL-FORMING SOLUTION [Concomitant]
     Indication: EYELID PTOSIS
     Dosage: ONE DROP ON THE EYELID
     Route: 061
  5. TIMOLOL. [Concomitant]
     Active Substance: TIMOLOL
     Indication: HAEMANGIOMA OF SKIN

REACTIONS (3)
  - Lethargy [Recovered/Resolved]
  - Hypothermia [Recovered/Resolved]
  - Bradycardia [Recovered/Resolved]
